FAERS Safety Report 5752217-1 (Version None)
Quarter: 2008Q2

REPORT INFORMATION
  Report Type: 
  Country: None (occurrence: None)
  Receive Date: 20080529
  Receipt Date: 20080520
  Transmission Date: 20081010
  Serious: Yes (Hospitalization)
  Sender: FDA-Public Use
  Company Number: NL-ROCHE-566208

PATIENT
  Sex: Male
  Weight: 5 kg

DRUGS (1)
  1. LARIAM [Suspect]
     Indication: MALARIA PROPHYLAXIS
     Route: 048
     Dates: start: 20080425, end: 20080425

REACTIONS (2)
  - CYANOSIS [None]
  - RESPIRATORY DISTRESS [None]
